FAERS Safety Report 23222214 (Version 1)
Quarter: 2023Q4

REPORT INFORMATION
  Report Type: Spontaneous
  Country: US (occurrence: US)
  Receive Date: 20231123
  Receipt Date: 20231123
  Transmission Date: 20240110
  Serious: No
  Sender: FDA-Public Use
  Company Number: US-009507513-2311USA006570

PATIENT

DRUGS (1)
  1. BELSOMRA [Suspect]
     Active Substance: SUVOREXANT
     Dosage: 5MG/1X DAILY
     Route: 048

REACTIONS (3)
  - Fine motor skill dysfunction [Unknown]
  - Joint dislocation [Unknown]
  - Product dose omission issue [Unknown]
